FAERS Safety Report 7156297-0 (Version None)
Quarter: 2010Q4

REPORT INFORMATION
  Report Type: 
  Country: None (occurrence: None)
  Receive Date: 20101214
  Receipt Date: 20101206
  Transmission Date: 20110411
  Serious: Yes (Life-Threatening, Hospitalization)
  Sender: FDA-Public Use
  Company Number: JP-AMGEN-JPNSP2010008646

PATIENT

DRUGS (3)
  1. ENBREL [Suspect]
     Indication: RHEUMATOID ARTHRITIS
     Dosage: UNK
     Route: 058
     Dates: start: 20070623, end: 20100614
  2. METHOTREXATE [Concomitant]
     Dosage: 8 MG, WEEKLY
     Route: 048
  3. TACROLIMUS [Concomitant]
     Dosage: 1MG DAILY
     Route: 048

REACTIONS (1)
  - BREAST CANCER [None]
